FAERS Safety Report 4881499-3 (Version None)
Quarter: 2005Q4

REPORT INFORMATION
  Report Type: 
  Country: None (occurrence: None)
  Receive Date: 20051201
  Receipt Date: 20050727
  Transmission Date: 20060501
  Serious: No
  Sender: FDA-Public Use
  Company Number: 2005PV000655

PATIENT
  Age: 56 Year
  Sex: Female
  Weight: 108.4097 kg

DRUGS (8)
  1. BYETTA [Suspect]
     Indication: DIABETES MELLITUS NON-INSULIN-DEPENDENT
     Dosage: 5 MCG;BID;SC
     Route: 058
     Dates: start: 20050705
  2. ACTOS [Concomitant]
  3. REGLAN [Concomitant]
  4. DITROPAN [Concomitant]
  5. PHENERGAN [Concomitant]
  6. XANAX [Concomitant]
  7. TENORMIN [Concomitant]
  8. ESTRACE [Concomitant]

REACTIONS (3)
  - DECREASED APPETITE [None]
  - NAUSEA [None]
  - WEIGHT FLUCTUATION [None]
